FAERS Safety Report 7508615-9 (Version None)
Quarter: 2011Q2

REPORT INFORMATION
  Report Type: 
  Country: None (occurrence: None)
  Receive Date: 20110527
  Receipt Date: 20110214
  Transmission Date: 20111010
  Serious: No
  Sender: FDA-Public Use
  Company Number: A0915363A

PATIENT
  Age: 66 Year
  Sex: Female
  Weight: 78.5 kg

DRUGS (16)
  1. ATIVAN [Concomitant]
  2. PRILOSEC [Concomitant]
  3. NEURONTIN [Concomitant]
  4. LOPERAMIDE [Concomitant]
  5. PREDNISONE [Concomitant]
  6. TRACLEER [Concomitant]
  7. FLOLAN [Suspect]
     Dates: start: 20110207
  8. CARDIZEM [Concomitant]
  9. FISH OIL [Concomitant]
  10. REVATIO [Concomitant]
  11. POTASSIUM CHLORIDE [Concomitant]
  12. ACETAMINOPHEN [Concomitant]
  13. COUMADIN [Concomitant]
  14. LASIX [Concomitant]
  15. ONDANSETRON [Concomitant]
  16. SPIRIVA [Concomitant]

REACTIONS (2)
  - ARTHRALGIA [None]
  - HEADACHE [None]
